FAERS Safety Report 19075298 (Version 1)
Quarter: 2021Q1

REPORT INFORMATION
  Report Type: Spontaneous
  Country: US (occurrence: US)
  Receive Date: 20210330
  Receipt Date: 20210330
  Transmission Date: 20210420
  Serious: No
  Sender: FDA-Public Use
  Company Number: US-ROCHE-2596848

PATIENT
  Age: 43 Year
  Sex: Male

DRUGS (1)
  1. ERIVEDGE [Suspect]
     Active Substance: VISMODEGIB
     Indication: MALIGNANT NEOPLASM OF SPINAL CORD
     Route: 048
     Dates: start: 202002

REACTIONS (3)
  - Nail infection [Unknown]
  - Nail discolouration [Unknown]
  - Sensory loss [Unknown]

NARRATIVE: CASE EVENT DATE: 20200506
